FAERS Safety Report 6398187-7 (Version None)
Quarter: 2009Q4

REPORT INFORMATION
  Report Type: 
  Country: None (occurrence: None)
  Receive Date: 20091013
  Receipt Date: 20091008
  Transmission Date: 20100525
  Serious: Yes (Other)
  Sender: FDA-Public Use
  Company Number: GB-BRISTOL-MYERS SQUIBB COMPANY-14810907

PATIENT
  Age: 38 Year
  Sex: Male

DRUGS (6)
  1. CYCLOPHOSPHAMIDE [Suspect]
     Indication: HIV INFECTION
     Dates: start: 20090815
  2. ETOPOSIDE [Interacting]
     Indication: HIV INFECTION
     Dates: start: 20090815
  3. LOMUSTINE [Interacting]
     Indication: HIV INFECTION
     Dosage: 80MG ON DAY 1
     Dates: start: 20090815
  4. DARUNAVIR [Concomitant]
  5. RITONAVIR [Concomitant]
  6. TRUVADA [Concomitant]

REACTIONS (2)
  - DRUG INTERACTION [None]
  - NEUTROPENIA [None]
